FAERS Safety Report 6689623-7 (Version None)
Quarter: 2010Q2

REPORT INFORMATION
  Report Type: 
  Country: None (occurrence: None)
  Receive Date: 20100421
  Receipt Date: 20100414
  Transmission Date: 20101027
  Serious: No
  Sender: FDA-Public Use
  Company Number: US-BIOGENIDEC-2010BI012937

PATIENT
  Age: 55 Year
  Sex: Female

DRUGS (2)
  1. TYSABRI [Suspect]
     Indication: MULTIPLE SCLEROSIS
     Route: 042
     Dates: start: 20090715
  2. AVONEX [Concomitant]
     Indication: MULTIPLE SCLEROSIS
     Route: 030
     Dates: start: 20031108

REACTIONS (4)
  - ASTHENIA [None]
  - BLOOD PRESSURE DECREASED [None]
  - FATIGUE [None]
  - HEADACHE [None]
